FAERS Safety Report 5252878-X (Version None)
Quarter: 2007Q1

REPORT INFORMATION
  Report Type: 
  Country: None (occurrence: None)
  Receive Date: 20070227
  Receipt Date: 20070212
  Transmission Date: 20070707
  Serious: Yes (Other)
  Sender: FDA-Public Use
  Company Number: 032-97

PATIENT
  Age: 79 Year
  Sex: Male

DRUGS (1)
  1. TEVETEN [Suspect]
     Indication: HYPERTENSION
     Dosage: 300 MG QD PO
     Route: 048
     Dates: start: 20050519, end: 20060301

REACTIONS (3)
  - CROHN'S DISEASE [None]
  - DIVERTICULUM [None]
  - WHITE BLOOD CELL COUNT INCREASED [None]
